FAERS Safety Report 20109398 (Version 1)
Quarter: 2021Q4

REPORT INFORMATION
  Report Type: Spontaneous
  Country: US (occurrence: None)
  Receive Date: 20211124
  Receipt Date: 20211124
  Transmission Date: 20220303
  Serious: Yes (Death)
  Sender: FDA-Public Use
  Company Number: None

PATIENT
  Age: 90 Year
  Sex: Female
  Weight: 56.3 kg

DRUGS (8)
  1. BAMLANIVIMAB\ETESEVIMAB [Suspect]
     Active Substance: BAMLANIVIMAB\ETESEVIMAB
     Dosage: FREQUENCY : ONCE;?
     Route: 042
     Dates: start: 20211117, end: 20211117
  2. ACETAMINOPHEN [Concomitant]
     Active Substance: ACETAMINOPHEN
  3. CHLORHEXIDINE [Concomitant]
     Active Substance: CHLORHEXIDINE
  4. GUAIFENESIN [Concomitant]
     Active Substance: GUAIFENESIN
  5. HEPARIN [Concomitant]
     Active Substance: HEPARIN SODIUM
  6. MELATONIN [Concomitant]
     Active Substance: MELATONIN
  7. MIDODRINE [Concomitant]
     Active Substance: MIDODRINE
  8. omeprazole oral suspension [Concomitant]

REACTIONS (6)
  - COVID-19 [None]
  - Unintentional use for unapproved indication [None]
  - Infusion related reaction [None]
  - Dyspnoea [None]
  - Heart rate decreased [None]
  - Respiratory arrest [None]

NARRATIVE: CASE EVENT DATE: 20211117
